FAERS Safety Report 8310836-2 (Version None)
Quarter: 2012Q2

REPORT INFORMATION
  Report Type: 
  Country: None (occurrence: None)
  Receive Date: 20120425
  Receipt Date: 20080505
  Transmission Date: 20120825
  Serious: Yes (Hospitalization)
  Sender: FDA-Public Use
  Company Number: FR-ROCHE-562956

PATIENT
  Sex: Male

DRUGS (21)
  1. KALETRA [Concomitant]
     Dates: start: 20070701, end: 20080104
  2. COMBIVIR [Concomitant]
  3. PAROXETINE HYDROCHLORIDE [Concomitant]
     Dates: start: 20080125, end: 20080203
  4. TEMODAL [Suspect]
     Route: 042
     Dates: start: 20080121, end: 20080125
  5. METHOTREXATE [Suspect]
     Route: 042
  6. LOVENOX [Concomitant]
  7. NEUPOGEN [Concomitant]
     Dates: start: 20080101, end: 20080102
  8. TEMODAL [Suspect]
     Indication: PRODUCT USED FOR UNKNOWN INDICATION
     Dosage: FORM: INJECTABLE SOLUTION
     Route: 042
     Dates: start: 20071224, end: 20071228
  9. KEPPRA [Concomitant]
  10. LEUCOVORIN CALCIUM [Concomitant]
  11. CYMEVAN [Suspect]
     Indication: PRODUCT USED FOR UNKNOWN INDICATION
     Route: 065
     Dates: start: 20071226, end: 20080103
  12. VALSARTAN  AND HYDROCHLOROTHIAZIDE [Concomitant]
  13. FOSCAVIR [Concomitant]
  14. CYTARABINE [Suspect]
     Indication: PRODUCT USED FOR UNKNOWN INDICATION
     Dosage: FORM: INJECTABLE SOLUTION
     Route: 042
     Dates: start: 20071225, end: 20071226
  15. KALETRA [Concomitant]
  16. TRUVADA [Concomitant]
     Dates: start: 20070701, end: 20080104
  17. METHOTREXATE [Suspect]
     Indication: PRODUCT USED FOR UNKNOWN INDICATION
     Route: 042
     Dates: start: 20071224, end: 20071224
  18. BACTRIM [Concomitant]
     Route: 048
  19. NEUPOGEN [Concomitant]
     Dates: start: 20080104, end: 20080108
  20. GRANOCYTE [Concomitant]
     Dates: start: 20080115, end: 20080125
  21. GRANOCYTE [Concomitant]
     Dosage: DAILY
     Dates: start: 20080127, end: 20080203

REACTIONS (1)
  - BONE MARROW FAILURE [None]
